FAERS Safety Report 7378269-3 (Version None)
Quarter: 2011Q1

REPORT INFORMATION
  Report Type: 
  Country: None (occurrence: None)
  Receive Date: 20110328
  Receipt Date: 20110324
  Transmission Date: 20110831
  Serious: Yes (Hospitalization)
  Sender: FDA-Public Use
  Company Number: R0016029A

PATIENT
  Sex: Male

DRUGS (9)
  1. BENZYL PENICILLIN [Concomitant]
     Indication: PNEUMONIA
     Dosage: 1.4IU6 PER DAY
     Route: 042
     Dates: start: 20110206, end: 20110208
  2. AMOXIL [Suspect]
     Indication: PNEUMONIA
     Route: 048
     Dates: start: 20110202, end: 20110204
  3. POLIO SABIN [Suspect]
     Route: 048
     Dates: start: 20100820, end: 20100820
  4. COTRIM [Concomitant]
     Indication: EXPOSURE TO COMMUNICABLE DISEASE
     Dosage: 5ML PER DAY
     Route: 048
     Dates: start: 20100611
  5. BLINDED VACCINE [Suspect]
     Route: 030
     Dates: start: 20100820, end: 20100820
  6. TRITANRIX-HEPB/HIB [Suspect]
     Route: 030
     Dates: start: 20100820, end: 20100820
  7. QUININE SULFATE [Concomitant]
     Indication: MALARIA
     Dosage: 140MG PER DAY
     Route: 042
     Dates: start: 20110204, end: 20110205
  8. ARTEMETHER + LUMEFANTRINE [Suspect]
     Indication: MALARIA
     Dosage: 280MG PER DAY
     Route: 048
     Dates: start: 20110202, end: 20110204
  9. ARTEMETHER + LUMEFANTRINE [Concomitant]
     Dosage: 280MG PER DAY
     Route: 048
     Dates: start: 20110207, end: 20110209

REACTIONS (5)
  - PNEUMONIA [None]
  - EYE PRURITUS [None]
  - GASTROENTERITIS [None]
  - MALARIA [None]
  - TACHYPNOEA [None]
